FAERS Safety Report 8598078-7 (Version None)
Quarter: 2012Q3

REPORT INFORMATION
  Report Type: 
  Country: None (occurrence: None)
  Receive Date: 20120816
  Receipt Date: 20120809
  Transmission Date: 20120928
  Serious: Yes (Other)
  Sender: FDA-Public Use
  Company Number: GB-ABBOTT-12P-167-0934260-00

PATIENT
  Sex: Male

DRUGS (2)
  1. HUMIRA [Suspect]
     Indication: PSORIASIS
     Route: 058
     Dates: start: 20091201
  2. METFORMIN HYDROCHLORIDE [Concomitant]
     Indication: DIABETES MELLITUS
     Route: 048

REACTIONS (28)
  - ANOSMIA [None]
  - SKIN DISCOLOURATION [None]
  - HYPERHIDROSIS [None]
  - BALANCE DISORDER [None]
  - RASH PRURITIC [None]
  - PSORIASIS [None]
  - GASTROOESOPHAGEAL REFLUX DISEASE [None]
  - ABDOMINAL DISTENSION [None]
  - SOMNOLENCE [None]
  - DYSPNOEA EXERTIONAL [None]
  - POOR QUALITY SLEEP [None]
  - ORAL DISCOMFORT [None]
  - NAUSEA [None]
  - DYSPEPSIA [None]
  - DRY SKIN [None]
  - DISORIENTATION [None]
  - PRURITUS [None]
  - TUBERCULOSIS [None]
  - FATIGUE [None]
  - DISTURBANCE IN ATTENTION [None]
  - GAIT DISTURBANCE [None]
  - THROAT IRRITATION [None]
  - FEELING ABNORMAL [None]
  - AGEUSIA [None]
  - COUGH [None]
  - DYSPNOEA [None]
  - OROPHARYNGEAL PAIN [None]
  - STRESS [None]
